FAERS Safety Report 12048191 (Version 1)
Quarter: 2016Q1

REPORT INFORMATION
  Report Type: Report from Study
  Country: US (occurrence: US)
  Receive Date: 20160208
  Receipt Date: 20160208
  Transmission Date: 20160526
  Serious: Yes (Hospitalization)
  Sender: FDA-Public Use
  Company Number: US-ABBVIE-15P-163-1385012-00

PATIENT
  Age: 53 Year
  Sex: Female

DRUGS (1)
  1. HUMIRA [Suspect]
     Active Substance: ADALIMUMAB
     Indication: COLITIS ULCERATIVE
     Route: 065
     Dates: start: 20150212

REACTIONS (5)
  - Pyrexia [Unknown]
  - Dehydration [Unknown]
  - Colitis ulcerative [Unknown]
  - Vomiting [Unknown]
  - Sepsis [Unknown]

NARRATIVE: CASE EVENT DATE: 20150425
